FAERS Safety Report 4883231-6 (Version None)
Quarter: 2006Q1

REPORT INFORMATION
  Report Type: 
  Country: None (occurrence: None)
  Receive Date: 20060117
  Receipt Date: 20060117
  Transmission Date: 20060701
  Serious: Yes (Hospitalization)
  Sender: FDA-Public Use
  Company Number: None

PATIENT
  Age: 80 Year
  Sex: Male

DRUGS (11)
  1. ALTACE [Suspect]
     Indication: HYPERTENSION
     Dosage: ORAL;1.25 MILLIGRAM
     Dates: start: 20051007, end: 20051010
  2. RABEPRAZOLE SODIUM [Concomitant]
  3. TAMSULOSIN HCL [Concomitant]
  4. THIAMINE [Concomitant]
  5. DOCUSATE SODIUM [Concomitant]
  6. FUROSEMIDE [Concomitant]
  7. PIOGLITAZONE HCL [Concomitant]
  8. LORATADINE [Concomitant]
  9. TERAZOSIN [Concomitant]
  10. SIMVASTATIN [Concomitant]
  11. METOPROLOL [Concomitant]

REACTIONS (1)
  - ANGIONEUROTIC OEDEMA [None]
